FAERS Safety Report 20350456 (Version 5)
Quarter: 2024Q4

REPORT INFORMATION
  Report Type: Spontaneous
  Country: US (occurrence: US)
  Receive Date: 20220119
  Receipt Date: 20241217
  Transmission Date: 20250115
  Serious: Yes (Hospitalization)
  Sender: PFIZER
  Company Number: US-PFIZER INC-2021782401

PATIENT
  Age: 68 Year
  Sex: Female
  Weight: 60.4 kg

DRUGS (2)
  1. IBRANCE [Suspect]
     Active Substance: PALBOCICLIB
     Dosage: 75 MG, DAILY (1 TABLET ORALLY DAILY)/1 TABLET DAILY FOR 21 DAYS, 7 DAYS OFF THEN REPEAT
     Route: 048
  2. XANAX [Concomitant]
     Active Substance: ALPRAZOLAM
     Indication: Anxiety
     Dosage: 1 TABLET ORALLY BID, PRN (AS NEEDED)
     Route: 048

REACTIONS (3)
  - Jaw disorder [Unknown]
  - Off label use [Unknown]
  - Oropharyngeal discomfort [Unknown]
